FAERS Safety Report 5641789-3 (Version None)
Quarter: 2008Q1

REPORT INFORMATION
  Report Type: 
  Country: None (occurrence: None)
  Receive Date: 20080227
  Receipt Date: 20080218
  Transmission Date: 20080703
  Serious: Yes (Disabling, Other)
  Sender: FDA-Public Use
  Company Number: PHHY2008JP00675

PATIENT
  Age: 49 Year
  Sex: Male
  Weight: 51 kg

DRUGS (7)
  1. STEROIDS NOS [Concomitant]
     Indication: KIDNEY TRANSPLANT REJECTION
     Dosage: PULSE THERAPY
     Route: 048
  2. SANDIMMUNE [Suspect]
     Indication: RENAL AND PANCREAS TRANSPLANT
     Dosage: 100 MG/ DAY
     Route: 042
     Dates: start: 20060617, end: 20060622
  3. METHYLPREDNISOLONE [Concomitant]
     Indication: RENAL AND PANCREAS TRANSPLANT
     Dosage: 250 MG/DAY
     Route: 042
     Dates: start: 20060617
  4. METHYLPREDNISOLONE [Concomitant]
     Dosage: 125 MG/DAY
     Route: 042
     Dates: end: 20060620
  5. MYCOPHENOLATE MOFETIL [Concomitant]
     Indication: RENAL AND PANCREAS TRANSPLANT
     Dosage: 2000 MG/DAY
     Route: 048
     Dates: start: 20060617
  6. MEDROL [Concomitant]
     Indication: RENAL AND PANCREAS TRANSPLANT
     Dosage: 24 MG/DAY
     Route: 048
     Dates: start: 20060621
  7. SIMULECT [Concomitant]
     Indication: RENAL AND PANCREAS TRANSPLANT
     Route: 042

REACTIONS (7)
  - BLOOD CREATININE INCREASED [None]
  - BLOOD UREA INCREASED [None]
  - COMPLICATIONS OF TRANSPLANTED KIDNEY [None]
  - DIALYSIS [None]
  - KIDNEY TRANSPLANT REJECTION [None]
  - RENAL DISORDER [None]
  - RENAL IMPAIRMENT [None]
